FAERS Safety Report 22105600 (Version 1)
Quarter: 2023Q1

REPORT INFORMATION
  Report Type: Spontaneous
  Country: NL (occurrence: NL)
  Receive Date: 20230317
  Receipt Date: 20230317
  Transmission Date: 20230418
  Serious: Yes (Life-Threatening, Hospitalization, Other)
  Sender: FDA-Public Use
  Company Number: None

PATIENT
  Sex: Female
  Weight: 59 kg

DRUGS (8)
  1. JANUMET [Suspect]
     Active Substance: METFORMIN HYDROCHLORIDE\SITAGLIPTIN PHOSPHATE
     Indication: Type 2 diabetes mellitus
     Dosage: 2 TIMES A DAY 1 PIECE
     Route: 048
     Dates: start: 20150917, end: 20211029
  2. XARELTO [Concomitant]
     Active Substance: RIVAROXABAN
     Dosage: TABLET, 2,5 MG (MILLIGRAM)
  3. ASPIRIN [Concomitant]
     Active Substance: ASPIRIN
     Dosage: TABLET, 80 MG (MILLIGRAM)
  4. AMLODIPINE [Concomitant]
     Active Substance: AMLODIPINE BESYLATE
     Dosage: TABLET, 5 MG (MILLIGRAM)
  5. ATORVASTATIN [Concomitant]
     Active Substance: ATORVASTATIN
     Dosage: TABLET, 40 MG (MILLIGRAM)
  6. PANTOPRAZOLE [Concomitant]
     Active Substance: PANTOPRAZOLE
     Dosage: 40 MILLIGRAM
  7. CHOLECALCIFEROL [Concomitant]
     Active Substance: CHOLECALCIFEROL
     Dosage: TABLET, 5600 IU
  8. METOPROLOL [Concomitant]
     Active Substance: METOPROLOL
     Dosage: CONTROLLED-RELEASE TABLET, 50 MG

REACTIONS (3)
  - Euglycaemic diabetic ketoacidosis [Unknown]
  - Renal failure [Unknown]
  - Lactic acidosis [Recovered/Resolved]
